FAERS Safety Report 20946726 (Version 4)
Quarter: 2022Q4

REPORT INFORMATION
  Report Type: Report from Study
  Country: PL (occurrence: PL)
  Receive Date: 20220610
  Receipt Date: 20221216
  Transmission Date: 20230112
  Serious: Yes (Hospitalization)
  Sender: FDA-Public Use
  Company Number: PL-ABBVIE-22P-129-4367787-00

PATIENT
  Age: 60 Year
  Sex: Male

DRUGS (6)
  1. VENETOCLAX [Suspect]
     Active Substance: VENETOCLAX
     Indication: Myelodysplastic syndrome
     Dosage: DAYS 1 TO 14 OF EACH 28 DAY CYCLE.
     Route: 048
     Dates: start: 20210920
  2. METOPROLOL SUCCINATE [Concomitant]
     Active Substance: METOPROLOL SUCCINATE
     Indication: Arrhythmia
     Route: 048
     Dates: start: 20211018
  3. NYSTATYNA [Concomitant]
     Indication: Oral fungal infection
     Dosage: TIME INTERVAL: 0.33333333 DAYS: 100000 J.M./ML
     Route: 048
     Dates: start: 20211018, end: 20211111
  4. NYSTATYNA [Concomitant]
     Indication: Oral fungal infection
     Dosage: TIME INTERVAL: 0.33333333 DAYS: 1 APPLICATION
     Route: 061
     Dates: start: 20220125
  5. METOPROLOL [Concomitant]
     Active Substance: METOPROLOL
     Indication: Atrial fibrillation
     Route: 048
     Dates: start: 20220207
  6. AZACITIDINE [Suspect]
     Active Substance: AZACITIDINE
     Indication: Myelodysplastic syndrome
     Dosage: 7 DAYS WITHIN FIRST 9 CALENDAR DAYS OF EACH 28 DAY CYCLE
     Route: 058
     Dates: start: 20210920

REACTIONS (1)
  - Pseudomonas infection [Recovered/Resolved]

NARRATIVE: CASE EVENT DATE: 20220420
